FAERS Safety Report 23726966 (Version 1)
Quarter: 2024Q2

REPORT INFORMATION
  Report Type: Spontaneous
  Country: TW (occurrence: TW)
  Receive Date: 20240410
  Receipt Date: 20240410
  Transmission Date: 20240715
  Serious: Yes (Other)
  Sender: FDA-Public Use
  Company Number: TW-002147023-NVSC2022TW304614

PATIENT

DRUGS (5)
  1. FINGOLIMOD [Suspect]
     Active Substance: FINGOLIMOD
     Indication: Product used for unknown indication
     Dosage: UNK, QD
     Route: 065
     Dates: start: 201210, end: 201909
  2. FINGOLIMOD [Suspect]
     Active Substance: FINGOLIMOD
     Dosage: UNK, QOD
     Route: 065
     Dates: start: 201909, end: 202003
  3. SIPONIMOD [Suspect]
     Active Substance: SIPONIMOD
     Indication: Product used for unknown indication
     Dosage: 2 MG, QD
     Route: 065
     Dates: start: 202009
  4. SIPONIMOD [Suspect]
     Active Substance: SIPONIMOD
     Dosage: 2 MG, QOD
     Route: 065
     Dates: start: 202103
  5. DIMETHYL FUMARATE [Concomitant]
     Active Substance: DIMETHYL FUMARATE
     Indication: Product used for unknown indication
     Dosage: 240 MG, BID
     Route: 065
     Dates: start: 202004, end: 202008

REACTIONS (7)
  - Multiple sclerosis relapse [Unknown]
  - Gait spastic [Unknown]
  - Allodynia [Unknown]
  - Depression [Unknown]
  - Memory impairment [Unknown]
  - Neuralgia [Unknown]
  - Lymphocyte count decreased [Unknown]

NARRATIVE: CASE EVENT DATE: 20140501
